FAERS Safety Report 13846554 (Version 1)
Quarter: 2017Q3

REPORT INFORMATION
  Report Type: Spontaneous
  Country: US (occurrence: US)
  Receive Date: 20170808
  Receipt Date: 20170808
  Transmission Date: 20171127
  Serious: No
  Sender: FDA-Public Use
  Company Number: US-SUNOVION-2017SUN001207

PATIENT
  Age: 80 Year
  Sex: Female
  Weight: 55.78 kg

DRUGS (1)
  1. LEVALBUTEROL TARTRATE. [Suspect]
     Active Substance: LEVALBUTEROL TARTRATE
     Indication: DYSPNOEA
     Dosage: 2 DF, Q6H
     Route: 055
     Dates: start: 20170228, end: 20170228

REACTIONS (3)
  - Drug ineffective [Unknown]
  - Dyspnoea [Not Recovered/Not Resolved]
  - Cough [Unknown]

NARRATIVE: CASE EVENT DATE: 20170228
